FAERS Safety Report 14297226 (Version 1)
Quarter: 2017Q4

REPORT INFORMATION
  Report Type: Spontaneous
  Country: US (occurrence: US)
  Receive Date: 20171218
  Receipt Date: 20171218
  Transmission Date: 20180321
  Serious: No
  Sender: FDA-Public Use
  Company Number: None

PATIENT
  Age: 70 Year
  Sex: Female
  Weight: 75.3 kg

DRUGS (9)
  1. METOPROLOL SUCCINATE. [Suspect]
     Active Substance: METOPROLOL SUCCINATE
     Indication: HYPERTENSION
     Route: 048
  2. ASPIRIN. [Concomitant]
     Active Substance: ASPIRIN
  3. VITAMIN B COMPLEX [Concomitant]
     Active Substance: CYANOCOBALAMIN\DEXPANTHENOL\NIACINAMIDE\PYRIDOXINE HYDROCHLORIDE\RIBOFLAVIN 5^-PHOSPHATE SODIUM\THIAMINE HYDROCHLORIDE\VITAMIN B COMPLEX
  4. COD LIVER OIL [Concomitant]
     Active Substance: COD LIVER OIL
  5. RED YEAST RICE [Concomitant]
     Active Substance: DIETARY SUPPLEMENT
  6. MAGNESIUM [Concomitant]
     Active Substance: MAGNESIUM
  7. COQ10 [Concomitant]
     Active Substance: UBIDECARENONE
  8. ZOCOR [Concomitant]
     Active Substance: SIMVASTATIN
  9. MICARDIS [Concomitant]
     Active Substance: TELMISARTAN

REACTIONS (7)
  - Libido increased [None]
  - Gait disturbance [None]
  - Blood pressure decreased [None]
  - Back pain [None]
  - Fall [None]
  - Muscle spasms [None]
  - Headache [None]

NARRATIVE: CASE EVENT DATE: 20171124
